FAERS Safety Report 15120305 (Version 2)
Quarter: 2018Q4

REPORT INFORMATION
  Report Type: Spontaneous
  Country: US (occurrence: US)
  Receive Date: 20180709
  Receipt Date: 20181101
  Transmission Date: 20190204
  Serious: No
  Sender: FDA-Public Use
  Company Number: US-PFIZER INC-2018274223

PATIENT
  Age: 62 Year
  Sex: Female
  Weight: 84 kg

DRUGS (4)
  1. CELECOXIB. [Concomitant]
     Active Substance: CELECOXIB
     Indication: RHEUMATOID ARTHRITIS
     Dosage: 200 MG, 1X/DAY (200MG 1 CAPSULE BY MOUTH DAILY/BUT SHE USUALLY JUST TAKES IT ONCE DAILY)
     Route: 048
  2. LEFLUNOMIDE. [Concomitant]
     Active Substance: LEFLUNOMIDE
     Indication: RHEUMATOID ARTHRITIS
     Dosage: 20 MG, 1X/DAY
  3. XELJANZ XR [Suspect]
     Active Substance: TOFACITINIB CITRATE
     Indication: RHEUMATOID ARTHRITIS
     Dosage: 11 MG, DAILY (EVERY EVENING)
     Route: 048
     Dates: start: 20180605
  4. VITAMIN D [Concomitant]
     Active Substance: CHOLECALCIFEROL
     Indication: VITAMIN D DEFICIENCY
     Dosage: 50000 IU, WEEKLY (50,000 IU, 1 CAPSULE EVERY 7 DAYS)
     Route: 048

REACTIONS (5)
  - Weight increased [Recovered/Resolved]
  - Oropharyngeal pain [Recovered/Resolved]
  - Pain [Not Recovered/Not Resolved]
  - Arthralgia [Recovered/Resolved]
  - Chills [Recovered/Resolved]

NARRATIVE: CASE EVENT DATE: 2018
